FAERS Safety Report 20425819 (Version 1)
Quarter: 2022Q1

REPORT INFORMATION
  Report Type: Report from Study
  Country: US (occurrence: US)
  Receive Date: 20220204
  Receipt Date: 20220204
  Transmission Date: 20220424
  Serious: No
  Sender: FDA-Public Use
  Company Number: US-EXELIXIS-CABO-21040193

PATIENT
  Age: 68 Year
  Sex: Male
  Weight: 76.19 kg

DRUGS (5)
  1. CABOMETYX [Suspect]
     Active Substance: CABOZANTINIB S-MALATE
     Indication: Metastases to the respiratory system
     Dosage: 60 MG, QD
     Route: 048
     Dates: start: 20210419
  2. CABOMETYX [Suspect]
     Active Substance: CABOZANTINIB S-MALATE
     Indication: Gastrointestinal neoplasm
     Dosage: 40 MG, QD
     Route: 048
  3. CABOMETYX [Suspect]
     Active Substance: CABOZANTINIB S-MALATE
     Indication: Metastases to lung
  4. COREG [Concomitant]
     Active Substance: CARVEDILOL
  5. AMLODIPINE BESYLATE [Concomitant]
     Active Substance: AMLODIPINE BESYLATE

REACTIONS (16)
  - Hypersensitivity [Unknown]
  - Sensitive skin [Unknown]
  - Skin fissures [Unknown]
  - Blister [Unknown]
  - Genital erythema [Unknown]
  - Genital ulceration [Unknown]
  - Tongue biting [Unknown]
  - Impaired healing [Unknown]
  - Skin wound [Unknown]
  - Renal impairment [Unknown]
  - Lip injury [Recovering/Resolving]
  - Glossodynia [Unknown]
  - Blood pressure increased [Unknown]
  - Abdominal pain upper [Unknown]
  - Pain in extremity [Unknown]
  - Off label use [Unknown]

NARRATIVE: CASE EVENT DATE: 20210421
